FAERS Safety Report 18889783 (Version 1)
Quarter: 2021Q1

REPORT INFORMATION
  Report Type: Report from Study
  Country: CA (occurrence: CA)
  Receive Date: 20210213
  Receipt Date: 20210213
  Transmission Date: 20210420
  Serious: Yes (Hospitalization, Other)
  Sender: FDA-Public Use
  Company Number: PHHY2017CA080008

PATIENT
  Age: 69 Year
  Sex: Female

DRUGS (2)
  1. GLEEVEC [Suspect]
     Active Substance: IMATINIB MESYLATE
     Indication: GASTROINTESTINAL STROMAL TUMOUR
     Dosage: 400 MG, QD (TOOK HALF IN MORNING AND ANOTHER HALF AT NIGHT WITH FOOD)
     Route: 048
     Dates: start: 20170309
  2. ZOCOR [Interacting]
     Active Substance: SIMVASTATIN
     Indication: PRODUCT USED FOR UNKNOWN INDICATION
     Route: 065

REACTIONS (33)
  - Skin burning sensation [Recovering/Resolving]
  - Oral discomfort [Recovering/Resolving]
  - Stress [Unknown]
  - Lip dry [Not Recovered/Not Resolved]
  - Stomatitis [Recovering/Resolving]
  - Cheilitis [Unknown]
  - Myalgia [Recovered/Resolved]
  - Myalgia [Recovering/Resolving]
  - Arthralgia [Recovering/Resolving]
  - Skin ulcer [Recovering/Resolving]
  - Weight increased [Unknown]
  - Rash [Unknown]
  - Arthralgia [Recovered/Resolved]
  - Drug ineffective [Unknown]
  - Weight decreased [Unknown]
  - Pain in extremity [Recovering/Resolving]
  - Skin sensitisation [Unknown]
  - Lip swelling [Unknown]
  - Back pain [Unknown]
  - Decreased appetite [Unknown]
  - Haemorrhage [Unknown]
  - Mastication disorder [Unknown]
  - Haemoglobin decreased [Unknown]
  - Pruritus [Recovering/Resolving]
  - Asthenia [Unknown]
  - Dementia Alzheimer^s type [Unknown]
  - Feeding disorder [Unknown]
  - Fatigue [Unknown]
  - Pain in extremity [Recovered/Resolved]
  - Diarrhoea [Not Recovered/Not Resolved]
  - Dry skin [Unknown]
  - Contusion [Unknown]
  - Wrong technique in product usage process [Not Recovered/Not Resolved]

NARRATIVE: CASE EVENT DATE: 20171122
